FAERS Safety Report 13286832 (Version 4)
Quarter: 2017Q3

REPORT INFORMATION
  Report Type: Report from Study
  Country: None (occurrence: BR)
  Receive Date: 20170301
  Receipt Date: 20170915
  Transmission Date: 20171127
  Serious: Yes (Hospitalization, Other)
  Sender: FDA-Public Use
  Company Number: BR-ABBVIE-17P-020-1891931-00

PATIENT
  Age: 32 Year
  Sex: Female
  Weight: 73.5 kg

DRUGS (8)
  1. AZATHIOPRINE. [Concomitant]
     Active Substance: AZATHIOPRINE
     Indication: CROHN^S DISEASE
     Route: 048
     Dates: start: 20160708
  2. HUMIRA [Suspect]
     Active Substance: ADALIMUMAB
     Indication: CROHN^S DISEASE
     Dosage: LOADING DOSE (WEEK 0)
     Route: 058
     Dates: start: 20160512, end: 20160512
  3. RIVOTRIL [Concomitant]
     Active Substance: CLONAZEPAM
     Indication: ANXIETY
     Route: 048
     Dates: start: 2015
  4. ESCILEX [Concomitant]
     Indication: ANXIETY
     Route: 048
     Dates: start: 2015
  5. MESALAZINE [Concomitant]
     Active Substance: MESALAMINE
     Indication: CROHN^S DISEASE
     Route: 054
     Dates: start: 20160707
  6. HUMIRA [Suspect]
     Active Substance: ADALIMUMAB
     Dosage: MAINTENANCE DOSE
     Route: 058
     Dates: start: 2016
  7. HUMIRA [Suspect]
     Active Substance: ADALIMUMAB
     Dosage: LOADING DOSE (WEEK 2)
     Route: 058
     Dates: start: 201605, end: 201605
  8. RIVOTRIL [Concomitant]
     Active Substance: CLONAZEPAM
     Indication: SLEEP DISORDER THERAPY

REACTIONS (15)
  - Vaginal haemorrhage [Unknown]
  - Haematochezia [Recovered/Resolved]
  - Haematochezia [Recovered/Resolved]
  - Haematochezia [Recovered/Resolved]
  - Diarrhoea [Recovered/Resolved]
  - Vomiting [Recovered/Resolved]
  - Haematoma [Recovered/Resolved]
  - Gastrointestinal necrosis [Unknown]
  - Pain [Recovered/Resolved]
  - Syncope [Recovered/Resolved]
  - Rectocele [Unknown]
  - Crohn^s disease [Unknown]
  - Weight decreased [Not Recovered/Not Resolved]
  - Intestinal obstruction [Unknown]
  - Ileus [Unknown]

NARRATIVE: CASE EVENT DATE: 2016
